FAERS Safety Report 9258244 (Version 1)
Quarter: 2013Q2

REPORT INFORMATION
  Report Type: Spontaneous
  Country: GB (occurrence: None)
  Receive Date: 20130422
  Receipt Date: 20130422
  Transmission Date: 20140414
  Serious: Yes (Death)
  Sender: FDA-Public Use
  Company Number: AUR-APL-2013-03179

PATIENT
  Age: 41 Year
  Sex: Female

DRUGS (1)
  1. SERTRALINE (SERTRALINE) (SERTRALINE) [Suspect]
     Indication: DEPRESSION

REACTIONS (7)
  - Depression [None]
  - Panic attack [None]
  - Weight decreased [None]
  - Completed suicide [None]
  - Accident [None]
  - Homicide [None]
  - Condition aggravated [None]
